FAERS Safety Report 6546251-1 (Version None)
Quarter: 2010Q1

REPORT INFORMATION
  Report Type: 
  Country: None (occurrence: None)
  Receive Date: 20100122
  Receipt Date: 20091222
  Transmission Date: 20100710
  Serious: No
  Sender: FDA-Public Use
  Company Number: US-BAYER-200940057NA

PATIENT
  Age: 76 Year
  Sex: Male

DRUGS (10)
  1. LEVITRA [Suspect]
     Indication: ERECTILE DYSFUNCTION
     Dosage: UNIT DOSE: 20 MG
     Route: 048
     Dates: start: 20091109
  2. LEVITRA [Suspect]
     Dosage: UNIT DOSE: 20 MG
     Route: 048
     Dates: start: 20091117
  3. ASPIRIN [Concomitant]
  4. METFORMIN [Concomitant]
     Dosage: UNIT DOSE: 500 MG
  5. AZOR [Concomitant]
     Dosage: 40
  6. CELEBREX [Concomitant]
     Dosage: 200
  7. FUROSEMIDE [Concomitant]
     Dosage: 20
  8. SIMVASTATIN [Concomitant]
  9. CALCIUM [Concomitant]
  10. VITAMIN D [Concomitant]

REACTIONS (1)
  - ERECTILE DYSFUNCTION [None]
